FAERS Safety Report 7634081-9 (Version None)
Quarter: 2011Q3

REPORT INFORMATION
  Report Type: 
  Country: None (occurrence: None)
  Receive Date: 20110725
  Receipt Date: 20110719
  Transmission Date: 20111222
  Serious: No
  Sender: FDA-Public Use
  Company Number: US-CEPHALON-2011003807

PATIENT
  Sex: Female

DRUGS (2)
  1. OPANA [Concomitant]
  2. FENTORA [Suspect]
     Indication: PAIN
     Route: 002
     Dates: start: 20100101

REACTIONS (1)
  - CIRCUMSTANCE OR INFORMATION CAPABLE OF LEADING TO MEDICATION ERROR [None]
